FAERS Safety Report 6381961-0 (Version None)
Quarter: 2009Q3

REPORT INFORMATION
  Report Type: 
  Country: None (occurrence: None)
  Receive Date: 20090930
  Receipt Date: 20090922
  Transmission Date: 20100115
  Serious: Yes (Other)
  Sender: FDA-Public Use
  Company Number: CA-BAYER-200928624NA

PATIENT
  Age: 65 Year
  Sex: Male
  Weight: 106 kg

DRUGS (17)
  1. SORAFENIB [Suspect]
     Indication: METASTATIC RENAL CELL CARCINOMA
     Dosage: TOTAL DAILY DOSE: 800 MG  UNIT DOSE: 200 MG
     Route: 048
     Dates: start: 20090424, end: 20090526
  2. SORAFENIB [Suspect]
     Dosage: AS USED: 400-200 MG  UNIT DOSE: 200 MG
     Route: 048
     Dates: start: 20090601, end: 20090716
  3. DOCUSATE SODIUM [Concomitant]
     Dosage: TOTAL DAILY DOSE: 400 MG
  4. RANITIDINE HCL [Concomitant]
     Dosage: TOTAL DAILY DOSE: 300 MG
  5. TAMSULOSIN HCL [Concomitant]
     Dosage: TOTAL DAILY DOSE: 0.4 MG
  6. VITAMIN D [Concomitant]
     Dosage: TOTAL DAILY DOSE: 1000 IU
  7. ACETAMINOPHEN [Concomitant]
     Dosage: 2 X 500 MG Q6H
  8. LOVENOX [Concomitant]
     Dosage: TOTAL DAILY DOSE: 150 MG
  9. AMLODIPINE [Concomitant]
     Dosage: TOTAL DAILY DOSE: 5 MG
  10. SENOKOT [Concomitant]
     Dosage: TOTAL DAILY DOSE: 8.6 MG
  11. CALCIUM CARBONATE [Concomitant]
     Dosage: TOTAL DAILY DOSE: 2500 MG
  12. DILTIAZEM [Concomitant]
     Dosage: TOTAL DAILY DOSE: 180 MG
     Dates: end: 20090714
  13. DILTIAZEM [Concomitant]
     Dosage: TOTAL DAILY DOSE: 360 MG
     Dates: start: 20090715
  14. DILTIAZEM [Concomitant]
     Dosage: TOTAL DAILY DOSE: 160 MG
     Dates: start: 20090811
  15. LASIX [Concomitant]
     Indication: CARDIAC FAILURE CONGESTIVE
     Dosage: TOTAL DAILY DOSE: 40 MG
     Dates: start: 20090720, end: 20090720
  16. LASIX [Concomitant]
     Dosage: TOTAL DAILY DOSE: 80 MG
     Dates: start: 20090721
  17. SLOW-K [Concomitant]
     Dosage: 2 X 600 MG QD; CON MED INITIATED POST SAE

REACTIONS (1)
  - EJECTION FRACTION DECREASED [None]
